FAERS Safety Report 23744400 (Version 2)
Quarter: 2024Q2

REPORT INFORMATION
  Report Type: Spontaneous
  Country: FR (occurrence: FR)
  Receive Date: 20240415
  Receipt Date: 20240501
  Transmission Date: 20240716
  Serious: Yes (Other)
  Sender: FDA-Public Use
  Company Number: None

PATIENT
  Age: 7 Month
  Sex: Male
  Weight: 5.48 kg

DRUGS (18)
  1. NICARDIPINE [Suspect]
     Active Substance: NICARDIPINE
     Indication: Hypertension
     Dosage: 0.10 MG/KG, TID
     Route: 048
  2. NICARDIPINE [Suspect]
     Active Substance: NICARDIPINE
     Dosage: 1.5 MG, QD
     Route: 048
     Dates: start: 20240310
  3. NICARDIPINE [Suspect]
     Active Substance: NICARDIPINE
     Dosage: 2.70 MG, QD
     Route: 048
     Dates: start: 20240315
  4. NICARDIPINE [Suspect]
     Active Substance: NICARDIPINE
     Dosage: 5 MG, QD
     Route: 048
     Dates: start: 20240315
  5. NICARDIPINE [Suspect]
     Active Substance: NICARDIPINE
     Dosage: 10 MG, QD
     Route: 048
     Dates: start: 20240320
  6. NICARDIPINE [Suspect]
     Active Substance: NICARDIPINE
     Dosage: 13.50 MG, QD
     Route: 048
     Dates: start: 20240322
  7. PREDNISOLONE [Suspect]
     Active Substance: PREDNISOLONE
     Indication: Tuberculosis
     Dosage: 7.5 MG QD
     Route: 048
     Dates: start: 20240308
  8. PREDNISOLONE [Suspect]
     Active Substance: PREDNISOLONE
     Dosage: 5 MG, QD
     Route: 048
  9. PREDNISOLONE [Suspect]
     Active Substance: PREDNISOLONE
     Dosage: 5 MG, QOD
     Route: 048
  10. RIFAMPIN [Suspect]
     Active Substance: RIFAMPIN
     Indication: Tuberculosis
     Dosage: 160 MG QD
     Route: 048
     Dates: start: 20240307
  11. PYRAZINAMIDE [Concomitant]
     Active Substance: PYRAZINAMIDE
     Dosage: UNK
  12. PYRAZINAMIDE [Concomitant]
     Active Substance: PYRAZINAMIDE
     Dosage: UNK
     Route: 065
  13. ISONIAZID [Concomitant]
     Active Substance: ISONIAZID
  14. ISONIAZID [Concomitant]
     Active Substance: ISONIAZID
     Dosage: UNK
     Route: 065
  15. ETHAMBUTOL HYDROCHLORIDE [Concomitant]
     Active Substance: ETHAMBUTOL HYDROCHLORIDE
  16. ETHAMBUTOL HYDROCHLORIDE [Concomitant]
     Active Substance: ETHAMBUTOL HYDROCHLORIDE
     Dosage: UNK
     Route: 065
  17. ESOMEPRAZOLE [Concomitant]
     Active Substance: ESOMEPRAZOLE
     Dosage: UNK
  18. ESOMEPRAZOLE [Concomitant]
     Active Substance: ESOMEPRAZOLE
     Dosage: UNK
     Route: 065

REACTIONS (2)
  - Hypertension [Recovering/Resolving]
  - Drug interaction [Unknown]

NARRATIVE: CASE EVENT DATE: 20240313
